FAERS Safety Report 25628060 (Version 1)
Quarter: 2025Q3

REPORT INFORMATION
  Report Type: Spontaneous
  Country: BR (occurrence: BR)
  Receive Date: 20250731
  Receipt Date: 20250731
  Transmission Date: 20251021
  Serious: Yes (Other)
  Sender: SANOFI AVENTIS
  Company Number: BR-SANOFI-02573441

PATIENT
  Age: 43 Year
  Sex: Female
  Weight: 56 kg

DRUGS (15)
  1. PURAN [Suspect]
     Active Substance: LEVOTHYROXINE SODIUM
     Indication: Hypothyroidism
     Dosage: 88 UG, QD
     Dates: start: 201509
  2. PURAN [Suspect]
     Active Substance: LEVOTHYROXINE SODIUM
     Dates: start: 20240831
  3. PURAN [Suspect]
     Active Substance: LEVOTHYROXINE SODIUM
     Dosage: 88 UG, QD
     Dates: start: 20240906
  4. PURAN [Suspect]
     Active Substance: LEVOTHYROXINE SODIUM
     Dosage: 75 UG
     Dates: start: 202503
  5. PURAN [Suspect]
     Active Substance: LEVOTHYROXINE SODIUM
     Dates: start: 2025
  6. PURAN [Suspect]
     Active Substance: LEVOTHYROXINE SODIUM
     Dates: start: 2025
  7. PURAN [Suspect]
     Active Substance: LEVOTHYROXINE SODIUM
     Dates: start: 2025
  8. PURAN [Suspect]
     Active Substance: LEVOTHYROXINE SODIUM
     Dates: start: 2025
  9. PURAN [Suspect]
     Active Substance: LEVOTHYROXINE SODIUM
     Dates: start: 2025
  10. ENOXAPARIN SODIUM [Suspect]
     Active Substance: ENOXAPARIN SODIUM
     Indication: Abortion spontaneous
     Route: 048
     Dates: start: 202408
  11. IRON [Suspect]
     Active Substance: IRON
     Indication: Blood iron decreased
     Dosage: 1 DF, QOD
     Route: 048
     Dates: start: 202407
  12. VITAMINS NOS [Concomitant]
     Active Substance: VITAMINS
     Indication: Supplementation therapy
     Dosage: 1 DF, QD
  13. FISH OIL [Concomitant]
     Active Substance: FISH OIL
     Dosage: 1 DF, QD
     Route: 048
     Dates: start: 2021
  14. FOLIC ACID [Concomitant]
     Active Substance: FOLIC ACID
     Indication: Pregnancy
     Dosage: 1 DF, QD
     Route: 048
     Dates: start: 2020
  15. RUBELLA VIRUS VACCINE LIVE NOS [Concomitant]
     Active Substance: RUBELLA VIRUS STRAIN WISTAR RA 27/3 LIVE ANTIGEN

REACTIONS (30)
  - Abortion spontaneous [Recovered/Resolved]
  - Hypothyroidism [Unknown]
  - Arrhythmia [Unknown]
  - Hyperthyroidism [Unknown]
  - Pollakiuria [Unknown]
  - Hot flush [Unknown]
  - Hyperhidrosis [Unknown]
  - Asthenia [Recovered/Resolved]
  - Mobility decreased [Unknown]
  - Agitation [Unknown]
  - Malaise [Unknown]
  - Silent thyroiditis [Unknown]
  - Benign neoplasm [Unknown]
  - Serum ferritin decreased [Unknown]
  - Weight decreased [Unknown]
  - Cardiac disorder [Unknown]
  - Infection [Unknown]
  - Gluten sensitivity [Unknown]
  - Ventricular extrasystoles [Unknown]
  - Gait disturbance [Unknown]
  - Thyroid hormones increased [Unknown]
  - Frequent bowel movements [Unknown]
  - Alopecia [Not Recovered/Not Resolved]
  - Tachycardia [Recovered/Resolved]
  - Tremor [Unknown]
  - Palpitations [Unknown]
  - Insomnia [Unknown]
  - In vitro fertilisation [Unknown]
  - Maternal exposure during pregnancy [Unknown]
  - Drug ineffective [Unknown]

NARRATIVE: CASE EVENT DATE: 20240101
